FAERS Safety Report 8880290 (Version 1)
Quarter: 2012Q4

REPORT INFORMATION
  Report Type: 
  Country: US (occurrence: US)
  Receive Date: 20121101
  Receipt Date: 20121101
  Transmission Date: 20130627
  Serious: Yes (Other)
  Sender: FDA-Public Use
  Company Number: US-PFIZER INC-2012266304

PATIENT
  Age: 58 Year
  Sex: Female
  Weight: 60.77 kg

DRUGS (8)
  1. LYRICA [Suspect]
     Indication: HERNIATED DISC
     Dosage: 50 mg, daily
     Dates: start: 201206
  2. LYRICA [Suspect]
     Indication: PAIN
     Dosage: 50 mg, 2x/day
     Dates: start: 2012
  3. LYRICA [Suspect]
     Dosage: 75 mg, 2x/day
     Dates: start: 2012, end: 20121023
  4. CORTISONE [Suspect]
     Indication: NECK PAIN
     Dosage: UNK
  5. CORTISONE [Suspect]
     Indication: SLIPPED DISC
  6. CYMBALTA [Suspect]
     Indication: PAIN
     Dosage: UNK
  7. RITALIN [Concomitant]
     Indication: UNHAPPINESS
     Dosage: 10 mg, 2x/day
     Dates: start: 20121018
  8. RITALIN [Concomitant]
     Indication: CONFUSIONAL STATE

REACTIONS (17)
  - Hypertension [Recovered/Resolved]
  - Hallucination [Unknown]
  - Urticaria [Not Recovered/Not Resolved]
  - Decreased appetite [Not Recovered/Not Resolved]
  - Nausea [Not Recovered/Not Resolved]
  - Dry mouth [Not Recovered/Not Resolved]
  - Oedema mouth [Not Recovered/Not Resolved]
  - Swollen tongue [Not Recovered/Not Resolved]
  - Rash [Not Recovered/Not Resolved]
  - Insomnia [Not Recovered/Not Resolved]
  - Arthropathy [Not Recovered/Not Resolved]
  - Activities of daily living impaired [Not Recovered/Not Resolved]
  - Feeling abnormal [Not Recovered/Not Resolved]
  - Weight decreased [Not Recovered/Not Resolved]
  - Spinal pain [Not Recovered/Not Resolved]
  - Fatigue [Not Recovered/Not Resolved]
  - Drug ineffective [Unknown]
